FAERS Safety Report 5110379-3 (Version None)
Quarter: 2006Q3

REPORT INFORMATION
  Report Type: 
  Country: None (occurrence: None)
  Receive Date: 20060918
  Receipt Date: 20060901
  Transmission Date: 20061208
  Serious: Yes (Hospitalization)
  Sender: FDA-Public Use
  Company Number: US-2006-025700

PATIENT
  Age: 49 Year
  Sex: Male

DRUGS (4)
  1. BETASERON [Suspect]
     Indication: MULTIPLE SCLEROSIS
     Dosage: 8 MIU, EVERY 2D, SUBCUTANEOUS
     Route: 058
     Dates: start: 20040321
  2. REQUIP [Suspect]
  3. TRAZODONE HCL [Suspect]
  4. CLONAZEPAM [Suspect]

REACTIONS (8)
  - AGITATION [None]
  - CONVULSION [None]
  - DRUG WITHDRAWAL SYNDROME [None]
  - ENCEPHALOPATHY [None]
  - INJECTION SITE ERYTHEMA [None]
  - INJECTION SITE PAIN [None]
  - INJECTION SITE REACTION [None]
  - INJECTION SITE WARMTH [None]
